FAERS Safety Report 24240890 (Version 1)
Quarter: 2024Q3

REPORT INFORMATION
  Report Type: Report from Study
  Country: JP (occurrence: JP)
  Receive Date: 20240823
  Receipt Date: 20240823
  Transmission Date: 20241016
  Serious: Yes (Other)
  Sender: ROCHE
  Company Number: JP-ROCHE-10000058986

PATIENT

DRUGS (7)
  1. ATEZOLIZUMAB [Suspect]
     Active Substance: ATEZOLIZUMAB
     Indication: Neoplasm
     Route: 065
  2. MYCOPHENOLATE MOFETIL [Suspect]
     Active Substance: MYCOPHENOLATE MOFETIL
     Indication: Immune-mediated hepatitis
     Route: 065
  3. NIVOLUMAB [Suspect]
     Active Substance: NIVOLUMAB
     Indication: Neoplasm
     Route: 065
  4. PEMBROLIZUMAB [Suspect]
     Active Substance: PEMBROLIZUMAB
     Indication: Neoplasm
     Route: 065
  5. AVELUMAB [Suspect]
     Active Substance: AVELUMAB
     Indication: Neoplasm
     Route: 065
  6. IPILIMUMAB [Suspect]
     Active Substance: IPILIMUMAB
     Indication: Neoplasm
     Route: 065
  7. DURVALUMAB [Suspect]
     Active Substance: DURVALUMAB
     Indication: Neoplasm
     Route: 065

REACTIONS (2)
  - Immune-mediated hepatitis [Unknown]
  - Off label use [Unknown]
